FAERS Safety Report 4289958-1 (Version None)
Quarter: 2004Q1

REPORT INFORMATION
  Report Type: 
  Country: None (occurrence: None)
  Receive Date: 20040209
  Receipt Date: 20020730
  Transmission Date: 20041129
  Serious: Yes (Hospitalization)
  Sender: FDA-Public Use
  Company Number: CA-ROCHE-318608

PATIENT
  Age: 47 Year
  Sex: Male

DRUGS (17)
  1. DACLIZUMAB [Suspect]
     Route: 042
     Dates: start: 20020628, end: 20020628
  2. DACLIZUMAB [Suspect]
     Dosage: 4 DOSES TOTAL.
     Route: 042
     Dates: start: 20020711, end: 20020822
  3. MYCOPHENOLATE MOFETIL [Suspect]
     Route: 048
     Dates: start: 20020628
  4. LEVOTHYROXINE SODIUM [Concomitant]
     Dosage: START DATE: PRE-TRANSPLANT - YEARS.
     Dates: start: 20020704
  5. METOPROLOL [Concomitant]
     Dosage: START DATE:  PRE-TRANSPLANT.
  6. ACYCLOVIR [Concomitant]
     Dates: start: 20020628, end: 20020915
  7. LISINOPRIL [Concomitant]
     Dates: start: 20020703
  8. MAGNESIUM OXIDE [Concomitant]
     Dates: start: 20020703
  9. SODIUM PHOSPHATE [Concomitant]
     Dates: start: 20020630
  10. VALSARTAN [Concomitant]
     Dates: start: 20020630
  11. PREDNISONE [Concomitant]
     Dates: start: 20021115
  12. NEORAL [Concomitant]
     Dates: start: 20021223
  13. PLAVIX [Concomitant]
     Dates: start: 20020706, end: 20020726
  14. RANITIDINE [Concomitant]
  15. CO-TRIMOXAZOLE [Concomitant]
     Dates: start: 20021215
  16. AMLODIPINE [Concomitant]
     Dates: start: 20021115
  17. MONOPRIL [Concomitant]
     Dates: start: 20021115

REACTIONS (6)
  - BLOOD CREATININE INCREASED [None]
  - CYTOMEGALOVIRUS INFECTION [None]
  - FATIGUE [None]
  - HEADACHE [None]
  - RENAL TUBULAR DISORDER [None]
  - TRANSPLANT REJECTION [None]
